FAERS Safety Report 6272136-4 (Version None)
Quarter: 2009Q3

REPORT INFORMATION
  Report Type: 
  Country: None (occurrence: None)
  Receive Date: 20090713
  Receipt Date: 20090313
  Transmission Date: 20100115
  Serious: No
  Sender: FDA-Public Use
  Company Number: 2009BM000063

PATIENT
  Age: 19 Year
  Sex: Male
  Weight: 100.3 kg

DRUGS (1)
  1. KUVAN [Suspect]
     Indication: PHENYLKETONURIA
     Dosage: 1000 MG;BID;PO
     Route: 048
     Dates: start: 20090305

REACTIONS (2)
  - ABDOMINAL PAIN [None]
  - DIARRHOEA [None]
